FAERS Safety Report 13735225 (Version 1)
Quarter: 2017Q3

REPORT INFORMATION
  Report Type: Spontaneous
  Country: US (occurrence: US)
  Receive Date: 20170707
  Receipt Date: 20170707
  Transmission Date: 20171127
  Serious: Yes (Other)
  Sender: FDA-Public Use
  Company Number: None

PATIENT
  Age: 57 Year
  Sex: Female
  Weight: 97.2 kg

DRUGS (7)
  1. AMANTADINE. [Suspect]
     Active Substance: AMANTADINE HYDROCHLORIDE
     Indication: FATIGUE
     Dosage: ?          OTHER STRENGTH:MG;QUANTITY:1 TABLET(S);?
     Route: 048
     Dates: start: 20170526, end: 20170621
  2. QVAR [Concomitant]
     Active Substance: BECLOMETHASONE DIPROPIONATE
  3. FISH OIL [Concomitant]
     Active Substance: FISH OIL
  4. GLUCODEMENE [Concomitant]
  5. NESONEX [Concomitant]
  6. AVONEX [Concomitant]
     Active Substance: INTERFERON BETA-1A
  7. EYE DROPS [Concomitant]
     Active Substance: UNSPECIFIED INGREDIENT

REACTIONS (2)
  - Visual impairment [None]
  - Visual field defect [None]

NARRATIVE: CASE EVENT DATE: 20170619
